FAERS Safety Report 22211554 (Version 1)
Quarter: 2023Q2

REPORT INFORMATION
  Report Type: Spontaneous
  Country: CN (occurrence: CN)
  Receive Date: 20230414
  Receipt Date: 20230414
  Transmission Date: 20230721
  Serious: Yes (Hospitalization, Other)
  Sender: FDA-Public Use
  Company Number: CN-009507513-2304CHN005305

PATIENT
  Age: 63 Year
  Sex: Female

DRUGS (4)
  1. PEMBROLIZUMAB [Suspect]
     Active Substance: PEMBROLIZUMAB
     Dosage: 0.4 GRAM, ONCE (1/DAY)
     Route: 041
     Dates: start: 20230318, end: 20230318
  2. CAPECITABINE [Suspect]
     Active Substance: CAPECITABINE
     Indication: Breast cancer
     Dosage: 1.0G, BID (D1-D14)
     Route: 048
     Dates: start: 20230318, end: 20230331
  3. GEMCITABINE [Suspect]
     Active Substance: GEMCITABINE
     Indication: Breast cancer
     Dosage: 1.5G, QD (D1, D5)
     Route: 041
     Dates: start: 20230318, end: 20230322
  4. BEVACIZUMAB [Suspect]
     Active Substance: BEVACIZUMAB
     Indication: Breast cancer
     Dosage: 0.4G, ONCE (1/DAY)
     Route: 041
     Dates: start: 20230318, end: 20230318

REACTIONS (1)
  - Myelosuppression [Recovering/Resolving]

NARRATIVE: CASE EVENT DATE: 20230404
